FAERS Safety Report 7439634-9 (Version None)
Quarter: 2011Q2

REPORT INFORMATION
  Report Type: 
  Country: None (occurrence: None)
  Receive Date: 20110427
  Receipt Date: 20110418
  Transmission Date: 20111010
  Serious: Yes (Other)
  Sender: FDA-Public Use
  Company Number: ES-SANOFI-AVENTIS-2011SA023649

PATIENT
  Age: 60 Year
  Sex: Male

DRUGS (9)
  1. SECALIP [Concomitant]
     Indication: HYPERTENSION
     Dosage: CE
     Route: 048
     Dates: start: 20110110
  2. MULTAQ [Suspect]
     Indication: ATRIAL FIBRILLATION
     Route: 048
     Dates: start: 20110110
  3. SINTROM [Interacting]
     Indication: ATRIAL FIBRILLATION
     Dosage: C/24H
     Route: 048
     Dates: start: 20100123
  4. METFORMIN HCL [Concomitant]
     Indication: DIABETES MELLITUS
     Dosage: A-DE
     Route: 048
     Dates: start: 20090218
  5. COAPROVEL [Concomitant]
     Indication: ATRIAL FIBRILLATION
     Dosage: DE
     Route: 048
     Dates: start: 20100827
  6. CEPRANDAL [Concomitant]
     Dosage: A-DE
     Route: 048
     Dates: start: 20090911
  7. TRANXILIUM [Concomitant]
     Dosage: C/24H NOC
     Route: 048
     Dates: start: 20090129
  8. LIQUIFILM [Concomitant]
     Indication: DIABETES MELLITUS
     Route: 047
     Dates: start: 20090910
  9. ZANIDIP [Concomitant]
     Indication: ESSENTIAL HYPERTENSION
     Dosage: A-DE
     Route: 048
     Dates: start: 20100513

REACTIONS (5)
  - FATIGUE [None]
  - DEPRESSION [None]
  - ANXIETY [None]
  - INTERNATIONAL NORMALISED RATIO INCREASED [None]
  - DRUG INTERACTION [None]
